FAERS Safety Report 5857196-4 (Version None)
Quarter: 2008Q3

REPORT INFORMATION
  Report Type: 
  Country: None (occurrence: None)
  Receive Date: 20080821
  Receipt Date: 20080605
  Transmission Date: 20090109
  Serious: Yes (Hospitalization)
  Sender: FDA-Public Use
  Company Number: 2008BI010645

PATIENT
  Age: 31 Year
  Sex: Male

DRUGS (5)
  1. TYSABRI [Suspect]
     Indication: MULTIPLE SCLEROSIS
     Dosage: 300 MG; QM; IV
     Route: 042
     Dates: start: 20071220, end: 20080320
  2. TYSABRI [Suspect]
  3. TYSABRI [Suspect]
  4. TYSABRI [Suspect]
  5. EMSELEX [Concomitant]

REACTIONS (3)
  - HERPES ZOSTER [None]
  - MONOCYTE COUNT ABNORMAL [None]
  - OPPORTUNISTIC INFECTION [None]
